FAERS Safety Report 18962695 (Version 1)
Quarter: 2021Q1

REPORT INFORMATION
  Report Type: Spontaneous
  Country: US (occurrence: US)
  Receive Date: 20210302
  Receipt Date: 20210302
  Transmission Date: 20210420
  Serious: Yes (Death)
  Sender: FDA-Public Use
  Company Number: None

PATIENT
  Age: 83 Year
  Sex: Male

DRUGS (2)
  1. PREDNISONE 5 MG MYLAN [Suspect]
     Active Substance: PREDNISONE
     Indication: PROSTATE CANCER
     Route: 048
     Dates: start: 20210115
  2. ABIRATERONE ACETATE 250 MG NOVADOZ PHARMACEUTICALS [Suspect]
     Active Substance: ABIRATERONE ACETATE
     Indication: PROSTATE CANCER
     Route: 048
     Dates: start: 20210115

REACTIONS (2)
  - Decreased appetite [None]
  - Urinary tract infection [None]

NARRATIVE: CASE EVENT DATE: 20210208
